FAERS Safety Report 25398610 (Version 1)
Quarter: 2025Q2

REPORT INFORMATION
  Report Type: Spontaneous
  Country: JP (occurrence: JP)
  Receive Date: 20250604
  Receipt Date: 20250604
  Transmission Date: 20250716
  Serious: Yes (Other)
  Sender: EISAI
  Company Number: JP-Eisai-202301764_LEN-EC_P_1

PATIENT
  Age: 72 Year
  Sex: Female

DRUGS (10)
  1. LENVIMA [Suspect]
     Active Substance: LENVATINIB
     Indication: Endometrial cancer
  2. KEYTRUDA [Suspect]
     Active Substance: PEMBROLIZUMAB
     Indication: Endometrial cancer
  3. LOCOID [Concomitant]
     Active Substance: HYDROCORTISONE BUTYRATE
     Indication: Immune-mediated dermatitis
     Route: 061
  4. LOCOID [Concomitant]
     Active Substance: HYDROCORTISONE BUTYRATE
     Route: 061
  5. CLOBETASOL [Concomitant]
     Active Substance: CLOBETASOL
     Indication: Immune-mediated dermatitis
     Route: 061
  6. CLOBETASOL [Concomitant]
     Active Substance: CLOBETASOL
     Route: 061
  7. HEPARINOID [Concomitant]
     Indication: Immune-mediated dermatitis
     Route: 061
  8. HEPARINOID [Concomitant]
     Route: 048
  9. PREDONINE [Concomitant]
     Active Substance: PREDNISOLONE
     Indication: Immune-mediated dermatitis
     Route: 048
  10. PREDONINE [Concomitant]
     Active Substance: PREDNISOLONE
     Indication: Renal impairment

REACTIONS (10)
  - Immune-mediated renal disorder [Recovering/Resolving]
  - Inflammation [Recovering/Resolving]
  - Immune thrombocytopenia [Recovering/Resolving]
  - Immune-mediated dermatitis [Recovering/Resolving]
  - White blood cell count decreased [Unknown]
  - Anaemia [Unknown]
  - Blood creatinine increased [Unknown]
  - Malaise [Unknown]
  - Diarrhoea [Unknown]
  - Protein urine present [Unknown]
